FAERS Safety Report 17408192 (Version 1)
Quarter: 2020Q1

REPORT INFORMATION
  Report Type: Spontaneous
  Country: US (occurrence: US)
  Receive Date: 20200128
  Receipt Date: 20200128
  Transmission Date: 20200409
  Serious: Yes (Hospitalization)
  Sender: FDA-Public Use
  Company Number: None

PATIENT
  Age: 16 Year
  Sex: Female

DRUGS (2)
  1. GAMMAGARD LIQUID [Suspect]
     Active Substance: HUMAN IMMUNOGLOBULIN G
     Indication: CHRONIC INFLAMMATORY DEMYELINATING POLYRADICULONEUROPATHY
     Dosage: ?          OTHER STRENGTH:30 GM/300ML;OTHER FREQUENCY:EVERY 2 WEEKS;?
     Route: 042
     Dates: start: 20191205
  2. GAMMAGARD LIQUID [Suspect]
     Active Substance: HUMAN IMMUNOGLOBULIN G
     Indication: CHRONIC INFLAMMATORY DEMYELINATING POLYRADICULONEUROPATHY
     Dosage: ?          OTHER STRENGTH:5 GM/50ML;OTHER FREQUENCY:EVERY 2 WEEKS;?
     Route: 042
     Dates: start: 20191205

REACTIONS (7)
  - Nasopharyngitis [None]
  - Musculoskeletal disorder [None]
  - Pulmonary thrombosis [None]
  - Crying [None]
  - Dizziness [None]
  - Chills [None]
  - Infusion related reaction [None]

NARRATIVE: CASE EVENT DATE: 20200124
